FAERS Safety Report 5731059-7 (Version None)
Quarter: 2008Q2

REPORT INFORMATION
  Report Type: 
  Country: None (occurrence: None)
  Receive Date: 20080507
  Receipt Date: 20080505
  Transmission Date: 20081010
  Serious: Yes (Hospitalization)
  Sender: FDA-Public Use
  Company Number: ES-MERCK-0804ESP00012

PATIENT
  Age: 65 Year
  Sex: Male

DRUGS (8)
  1. JANUVIA [Suspect]
     Indication: TYPE 2 DIABETES MELLITUS
     Route: 048
     Dates: start: 20080214, end: 20080216
  2. BETAHISTINE HYDROCHLORIDE [Suspect]
     Indication: VERTIGO
     Route: 048
     Dates: start: 20080214, end: 20080216
  3. ASPIRIN [Concomitant]
     Route: 065
  4. HYDROCHLOROTHIAZIDE AND LOSARTAN POTASSIUM [Concomitant]
     Route: 048
     Dates: start: 20070201
  5. DOXAZOSIN MESYLATE [Concomitant]
     Route: 065
  6. NIFEDIPINE [Concomitant]
     Route: 065
  7. ENALAPRIL MALEATE [Concomitant]
     Route: 065
  8. OMEPRAZOLE [Concomitant]
     Indication: HIATUS HERNIA
     Route: 065

REACTIONS (3)
  - DERMATITIS ALLERGIC [None]
  - RASH VESICULAR [None]
  - SKIN EXFOLIATION [None]
